FAERS Safety Report 8145804-7 (Version None)
Quarter: 2012Q1

REPORT INFORMATION
  Report Type: 
  Country: None (occurrence: None)
  Receive Date: 20120217
  Receipt Date: 20110509
  Transmission Date: 20120608
  Serious: No
  Sender: FDA-Public Use
  Company Number: US-ABBOTT-11P-163-0724268-00

PATIENT
  Sex: Female

DRUGS (2)
  1. SIMCOR [Suspect]
     Indication: BLOOD CHOLESTEROL INCREASED
     Dates: end: 20110506
  2. SIMCOR [Suspect]
     Indication: CARDIAC DISORDER

REACTIONS (2)
  - GROIN PAIN [None]
  - HEART RATE INCREASED [None]
